FAERS Safety Report 8450014-X (Version None)
Quarter: 2012Q2

REPORT INFORMATION
  Report Type: 
  Country: None (occurrence: None)
  Receive Date: 20120620
  Receipt Date: 20120619
  Transmission Date: 20120825
  Serious: Yes (Other)
  Sender: FDA-Public Use
  Company Number: PHHY2012NL052349

PATIENT
  Sex: Male

DRUGS (8)
  1. ZOMETA [Suspect]
     Dosage: 4 MG/100 ML ONCE EVERY 28 DAYS
     Dates: start: 20120619
  2. PANTOPRAZOLE [Concomitant]
     Dosage: 40 MG, DAILY
  3. SIMVASTATIN [Concomitant]
     Dosage: 20 MG, DAILY
     Route: 065
  4. ZOMETA [Suspect]
     Indication: PROSTATE CANCER METASTATIC
     Dosage: 4 MG/100 ML ONCE EVERY 28 DAYS
     Dates: start: 20120109
  5. ZOMETA [Suspect]
     Dosage: 4 MG/100 ML ONCE EVERY 28 DAYS
     Dates: start: 20120525
  6. FENPROCOUMON [Concomitant]
     Dosage: 3 MG, UNK
     Route: 065
  7. CLOPIDOL [Concomitant]
     Dosage: 75 MG, UNK
     Route: 065
  8. TAMBOCOR [Concomitant]
     Dosage: 100 MG, DAILY
     Route: 065

REACTIONS (2)
  - WRIST FRACTURE [None]
  - FALL [None]
